FAERS Safety Report 6167735-4 (Version None)
Quarter: 2009Q2

REPORT INFORMATION
  Report Type: 
  Country: None (occurrence: None)
  Receive Date: 20090427
  Receipt Date: 20090422
  Transmission Date: 20091009
  Serious: Yes (Life-Threatening, Hospitalization)
  Sender: FDA-Public Use
  Company Number: JP-BAYER-200911156BYL

PATIENT
  Age: 80 Year
  Sex: Female
  Weight: 49 kg

DRUGS (3)
  1. MAGNEVIST [Suspect]
     Indication: NUCLEAR MAGNETIC RESONANCE IMAGING
     Route: 042
     Dates: start: 20090410, end: 20090410
  2. MUCODYNE [Concomitant]
     Indication: NASAL CONGESTION
     Route: 048
     Dates: start: 20090223
  3. MUCOSOLVAN [Concomitant]
     Indication: NASAL CONGESTION
     Route: 048
     Dates: start: 20070223

REACTIONS (2)
  - MOUTH HAEMORRHAGE [None]
  - PLATELET COUNT DECREASED [None]
